FAERS Safety Report 18709992 (Version 2)
Quarter: 2021Q1

REPORT INFORMATION
  Report Type: Spontaneous
  Country: US (occurrence: US)
  Receive Date: 20210106
  Receipt Date: 20210115
  Transmission Date: 20210419
  Serious: Yes (Life-Threatening, Hospitalization, Other)
  Sender: FDA-Public Use
  Company Number: US-BAXTER-2021BAX000170

PATIENT
  Age: 59 Year
  Sex: Female

DRUGS (3)
  1. DOXIL [Suspect]
     Active Substance: DOXORUBICIN HYDROCHLORIDE
     Indication: ENDOMETRIAL STROMAL SARCOMA
     Dosage: CYCLICAL (3 CYCLICAL)
     Route: 065
     Dates: start: 201711
  2. OLARATUMAB [Suspect]
     Active Substance: OLARATUMAB
     Indication: ENDOMETRIAL STROMAL SARCOMA
     Dosage: CYCLICAL (3 CYCLICAL)
     Route: 065
     Dates: start: 201711
  3. CABOZANTINIB [Concomitant]
     Active Substance: CABOZANTINIB
     Indication: PRODUCT USED FOR UNKNOWN INDICATION
     Dosage: REDUCED DOSE
     Route: 065

REACTIONS (1)
  - Pneumothorax [Unknown]

NARRATIVE: CASE EVENT DATE: 201801
